FAERS Safety Report 11444695 (Version 1)
Quarter: 2015Q3

REPORT INFORMATION
  Report Type: Not Available
  Country: US (occurrence: US)
  Receive Date: 20150902
  Receipt Date: 20150902
  Transmission Date: 20151125
  Serious: No
  Sender: FDA-Public Use
  Company Number: US-LUPIN PHARMACEUTICALS INC.-E2B_00003655

PATIENT
  Age: 72 Year
  Sex: Female
  Weight: 67.19 kg

DRUGS (9)
  1. HYALURONIC ACID [Concomitant]
     Active Substance: HYALURONIC ACID
     Indication: ROUTINE HEALTH MAINTENANCE
  2. JARRO-ZYME [Concomitant]
     Indication: ENZYME SUPPLEMENTATION
  3. VITAMIN B12 [Concomitant]
     Active Substance: CYANOCOBALAMIN
     Indication: ROUTINE HEALTH MAINTENANCE
  4. POTASSIUM [Concomitant]
     Active Substance: POTASSIUM
     Indication: ROUTINE HEALTH MAINTENANCE
  5. FLUOXETINE [Concomitant]
     Active Substance: FLUOXETINE\FLUOXETINE HYDROCHLORIDE
     Indication: DEPRESSION
  6. LEVOTHYROXINE. [Concomitant]
     Active Substance: LEVOTHYROXINE
     Indication: HYPOTHYROIDISM
  7. PYCNOGENOL [Concomitant]
     Active Substance: DIETARY SUPPLEMENT
     Indication: ANTIOXIDANT THERAPY
  8. MELOXICAM TABLETS USP 15MG [Suspect]
     Active Substance: MELOXICAM
     Indication: ARTHRALGIA
     Dates: start: 201412, end: 201505
  9. SOCKEYE SALMON [Concomitant]
     Indication: ROUTINE HEALTH MAINTENANCE

REACTIONS (1)
  - Dyspnoea [Not Recovered/Not Resolved]

NARRATIVE: CASE EVENT DATE: 201502
